FAERS Safety Report 20027990 (Version 2)
Quarter: 2021Q4

REPORT INFORMATION
  Report Type: Spontaneous
  Country: ES (occurrence: ES)
  Receive Date: 20211103
  Receipt Date: 20211111
  Transmission Date: 20220304
  Serious: Yes (Other)
  Sender: FDA-Public Use
  Company Number: ES-002147023-NVSC2021ES241908

PATIENT
  Age: 64 Year

DRUGS (1)
  1. XOLAIR [Suspect]
     Active Substance: OMALIZUMAB
     Indication: Chronic spontaneous urticaria
     Route: 065

REACTIONS (3)
  - Cervix carcinoma [Unknown]
  - Anxiety [Unknown]
  - Urticaria [Unknown]
